FAERS Safety Report 9968652 (Version 1)
Quarter: 2014Q1

REPORT INFORMATION
  Report Type: Spontaneous
  Country: US (occurrence: US)
  Receive Date: 20140306
  Receipt Date: 20140306
  Transmission Date: 20141002
  Serious: Yes (Hospitalization, Other)
  Sender: FDA-Public Use
  Company Number: US-ABBVIE-13P-163-1142684-00

PATIENT
  Sex: 0

DRUGS (6)
  1. HUMIRA [Suspect]
     Indication: CROHN^S DISEASE
  2. REMICADE [Suspect]
     Indication: CROHN^S DISEASE
  3. CIMZIA [Suspect]
     Indication: CROHN^S DISEASE
  4. PREDNISONE [Suspect]
     Indication: CROHN^S DISEASE
  5. IMURAN [Suspect]
     Indication: CROHN^S DISEASE
  6. 6-MP [Suspect]
     Indication: CROHN^S DISEASE

REACTIONS (3)
  - Abdominal operation [Unknown]
  - Hospitalisation [Unknown]
  - Adverse drug reaction [Unknown]
